FAERS Safety Report 4928584-5 (Version None)
Quarter: 2006Q1

REPORT INFORMATION
  Report Type: 
  Country: None (occurrence: None)
  Receive Date: 20060223
  Receipt Date: 20060201
  Transmission Date: 20060701
  Serious: Yes (Hospitalization, Other)
  Sender: FDA-Public Use
  Company Number: US200602000379

PATIENT
  Age: 78 Year
  Sex: Male
  Weight: 79.4 kg

DRUGS (11)
  1. HUMULIN 70/30 [Suspect]
     Indication: DIABETES MELLITUS
     Dosage: SEE IMAGE
  2. HUMULIN N [Suspect]
     Indication: DIABETES MELLITUS
  3. CLONIDINE [Concomitant]
  4. METOPROLOL (METOPROLOL) [Concomitant]
  5. METOLAZONE [Concomitant]
  6. NEXIUM [Concomitant]
  7. FUROSEMIDE [Concomitant]
  8. PLAVIX [Concomitant]
  9. ISOSORBIDE (ISOSORBIDE) [Concomitant]
  10. NITROSTAT [Concomitant]
  11. QUININE SULFATE (QUININE SULFATE) CAPSULE [Concomitant]

REACTIONS (8)
  - CORONARY ARTERY OCCLUSION [None]
  - DIALYSIS [None]
  - DYSPEPSIA [None]
  - MUSCLE SPASMS [None]
  - NEPHRECTOMY [None]
  - PHARMACEUTICAL PRODUCT COMPLAINT [None]
  - RENAL DISORDER [None]
  - RENAL IMPAIRMENT [None]
